FAERS Safety Report 24571727 (Version 1)
Quarter: 2024Q4

REPORT INFORMATION
  Report Type: Spontaneous
  Country: US (occurrence: None)
  Receive Date: 20241031
  Receipt Date: 20241031
  Transmission Date: 20250115
  Serious: Yes (Hospitalization)
  Sender: Public
  Company Number: None

PATIENT
  Age: 65 Year
  Sex: Male
  Weight: 101.2 kg

DRUGS (1)
  1. LUPRON DEPOT [Suspect]
     Active Substance: LEUPROLIDE ACETATE
     Dosage: 30 MG 16 WEEKS INTRAMUSCULAR
     Route: 030

REACTIONS (5)
  - Cerebrovascular accident [None]
  - Transient ischaemic attack [None]
  - Seizure [None]
  - Dementia [None]
  - Dementia Alzheimer^s type [None]

NARRATIVE: CASE EVENT DATE: 20241020
